FAERS Safety Report 7760275-8 (Version None)
Quarter: 2011Q3

REPORT INFORMATION
  Report Type: 
  Country: None (occurrence: None)
  Receive Date: 20110919
  Receipt Date: 20110913
  Transmission Date: 20111222
  Serious: Yes (Death, Life-Threatening, Hospitalization)
  Sender: FDA-Public Use
  Company Number: DK-ASTRAZENECA-2008SE02308

PATIENT
  Age: 23 Year
  Sex: Male

DRUGS (1)
  1. SEROQUEL XR [Suspect]
     Indication: RESTLESSNESS
     Route: 048
     Dates: start: 20080429, end: 20080502

REACTIONS (3)
  - RESPIRATORY DEPRESSION [None]
  - PNEUMONIA ASPIRATION [None]
  - VOMITING [None]
